FAERS Safety Report 7014251-3 (Version None)
Quarter: 2010Q3

REPORT INFORMATION
  Report Type: 
  Country: None (occurrence: None)
  Receive Date: 20100927
  Receipt Date: 20100915
  Transmission Date: 20110219
  Serious: Yes (Hospitalization)
  Sender: FDA-Public Use
  Company Number: US-JNJFOC-20100905379

PATIENT
  Sex: Male
  Weight: 74.84 kg

DRUGS (2)
  1. PARAFON FORTE [Suspect]
     Indication: PAIN
     Route: 048
  2. ANTIBIOTICS [Concomitant]

REACTIONS (7)
  - ASTHENIA [None]
  - ERYTHEMA [None]
  - FALL [None]
  - NERVOUSNESS [None]
  - SWELLING [None]
  - TREMOR [None]
  - VOMITING [None]
